FAERS Safety Report 11596605 (Version 1)
Quarter: 2015Q4

REPORT INFORMATION
  Report Type: Spontaneous
  Country: FI (occurrence: FI)
  Receive Date: 20151006
  Receipt Date: 20151006
  Transmission Date: 20160304
  Serious: Yes (Hospitalization)
  Sender: FDA-Public Use
  Company Number: FI-ELI_LILLY_AND_COMPANY-FI201509008738

PATIENT
  Age: 37 Year
  Sex: Male

DRUGS (5)
  1. KETIPINOR [Concomitant]
     Dosage: 25 MG, UNKNOWN
     Route: 065
  2. OPAMOX [Concomitant]
     Dosage: 15 MG, UNKNOWN
     Route: 065
  3. TENOX                              /00393701/ [Concomitant]
     Dosage: 20 MG, EACH EVENING
     Route: 065
  4. MELATONIN [Concomitant]
     Active Substance: MELATONIN
     Dosage: 3 MG, UNKNOWN
     Route: 065
  5. ZYPADHERA [Suspect]
     Active Substance: OLANZAPINE PAMOATE
     Indication: PRODUCT USED FOR UNKNOWN INDICATION
     Dosage: 210 MG, 2/M
     Route: 030

REACTIONS (6)
  - Somnolence [Recovered/Resolved]
  - Dysarthria [Recovered/Resolved]
  - Dizziness [Recovered/Resolved]
  - Blood pressure increased [Recovered/Resolved]
  - Fatigue [Recovered/Resolved]
  - Irritability [Recovered/Resolved]
